FAERS Safety Report 17137521 (Version 2)
Quarter: 2019Q4

REPORT INFORMATION
  Report Type: Spontaneous
  Country: PT (occurrence: PT)
  Receive Date: 20191210
  Receipt Date: 20191217
  Transmission Date: 20200122
  Serious: Yes (Hospitalization, Other)
  Sender: FDA-Public Use
  Company Number: PT-AUROBINDO-AUR-APL-2019-064812

PATIENT
  Age: 75 Year
  Sex: Female

DRUGS (6)
  1. PERINDOPRIL [Suspect]
     Active Substance: PERINDOPRIL
     Indication: HYPERTENSION
     Dosage: UNK,8/2,5 MG
     Route: 065
  2. ACETYLSALICYLIC ACID [Concomitant]
     Active Substance: ASPIRIN
     Indication: PRODUCT USED FOR UNKNOWN INDICATION
     Dosage: UNK
     Route: 065
  3. BISOPROLOL [Concomitant]
     Active Substance: BISOPROLOL
     Indication: PRODUCT USED FOR UNKNOWN INDICATION
     Dosage: UNK
     Route: 065
  4. RAMIPRIL. [Concomitant]
     Active Substance: RAMIPRIL
     Indication: PRODUCT USED FOR UNKNOWN INDICATION
     Dosage: UNK
     Route: 065
  5. INDAPAMIDE. [Suspect]
     Active Substance: INDAPAMIDE
     Indication: HYPERTENSION
     Dosage: UNK,8/2,5 MG
     Route: 065
  6. PERINDOPRIL+INDAPAMIDE 8MG/2.5MG [Suspect]
     Active Substance: INDAPAMIDE\PERINDOPRIL
     Indication: HYPERTENSION
     Dosage: UNK, 8/2,5 MG
     Route: 065

REACTIONS (7)
  - Generalised tonic-clonic seizure [Recovered/Resolved]
  - Hyponatraemia [Recovered/Resolved]
  - Coma [Recovered/Resolved]
  - Seizure [Recovered/Resolved]
  - Abdominal pain [Recovered/Resolved]
  - Stress cardiomyopathy [Recovered/Resolved]
  - Vomiting [Recovered/Resolved]
